FAERS Safety Report 14434230 (Version 2)
Quarter: 2018Q1

REPORT INFORMATION
  Report Type: Report from Study
  Country: CA (occurrence: CA)
  Receive Date: 20180124
  Receipt Date: 20180208
  Transmission Date: 20180509
  Serious: Yes (Death, Hospitalization, Other)
  Sender: FDA-Public Use
  Company Number: CA-MYLANLABS-2018M1007104

PATIENT
  Age: 71 Year
  Sex: Male

DRUGS (10)
  1. CLOZAPINE. [Suspect]
     Active Substance: CLOZAPINE
     Dosage: 50 MG, QD
     Route: 048
  2. CLOZAPINE. [Suspect]
     Active Substance: CLOZAPINE
     Dosage: UNK
     Route: 048
  3. CLOZAPINE. [Suspect]
     Active Substance: CLOZAPINE
     Dosage: 25 MG, QD
     Route: 048
  4. CLOZAPINE. [Suspect]
     Active Substance: CLOZAPINE
     Dosage: 50 MG, QD
     Route: 048
  5. CLOZAPINE. [Suspect]
     Active Substance: CLOZAPINE
     Dosage: 25 MG, QD
     Route: 048
  6. CLOZAPINE. [Suspect]
     Active Substance: CLOZAPINE
     Dosage: UNK
     Route: 048
  7. CLOZAPINE. [Suspect]
     Active Substance: CLOZAPINE
     Dosage: UNK
     Route: 048
  8. CLOZAPINE. [Suspect]
     Active Substance: CLOZAPINE
     Dosage: UNK
     Route: 048
  9. DEPAKENE [Suspect]
     Active Substance: VALPROIC ACID
     Indication: PRODUCT USED FOR UNKNOWN INDICATION
     Dosage: UNK
  10. CLOZAPINE. [Suspect]
     Active Substance: CLOZAPINE
     Indication: PRODUCT USED FOR UNKNOWN INDICATION
     Dosage: 25 MG, QD
     Route: 048

REACTIONS (20)
  - Cataract [Fatal]
  - Osteoporosis [Fatal]
  - Malaise [Fatal]
  - Corneal deposits [Fatal]
  - Eosinophilia [Fatal]
  - Hypothyroidism [Fatal]
  - Red blood cell count decreased [Fatal]
  - Antipsychotic drug level above therapeutic [Fatal]
  - Chronic kidney disease [Fatal]
  - Schizophrenia [Fatal]
  - Anaemia [Fatal]
  - Coronary artery disease [Fatal]
  - Orthostatic hypotension [Fatal]
  - PCO2 decreased [Fatal]
  - Thrombocytopenia [Fatal]
  - Autism spectrum disorder [Fatal]
  - Hyperlipidaemia [Fatal]
  - Hypotension [Fatal]
  - Mania [Fatal]
  - Water intoxication [Fatal]
